FAERS Safety Report 16289689 (Version 1)
Quarter: 2019Q2

REPORT INFORMATION
  Report Type: Report from Study
  Country: US (occurrence: US)
  Receive Date: 20190509
  Receipt Date: 20190509
  Transmission Date: 20190711
  Serious: Yes (Hospitalization, Other)
  Sender: FDA-Public Use
  Company Number: US-ROCHE-2206283

PATIENT
  Sex: Female

DRUGS (2)
  1. ACTEMRA [Suspect]
     Active Substance: TOCILIZUMAB
     Indication: TEMPORAL ARTERITIS
     Dosage: ONGOING: YES
     Route: 058
     Dates: start: 201810
  2. ACTEMRA [Suspect]
     Active Substance: TOCILIZUMAB
     Dosage: EVERY FRIDAY
     Route: 058

REACTIONS (4)
  - Auditory disorder [Not Recovered/Not Resolved]
  - Staphylococcal infection [Recovered/Resolved]
  - Pain in extremity [Not Recovered/Not Resolved]
  - Deafness [Unknown]
